FAERS Safety Report 5918540-2 (Version None)
Quarter: 2008Q4

REPORT INFORMATION
  Report Type: 
  Country: None (occurrence: None)
  Receive Date: 20081014
  Receipt Date: 20081014
  Transmission Date: 20090506
  Serious: Yes (Life-Threatening)
  Sender: FDA-Public Use
  Company Number: None

PATIENT
  Age: 10 Month
  Sex: Male
  Weight: 5.2 kg

DRUGS (1)
  1. C-PHEN DM SYRUP [Suspect]
     Indication: UPPER RESPIRATORY TRACT INFECTION
     Dosage: 0.5ML Q6H PO
     Route: 048
     Dates: start: 20081006, end: 20081006

REACTIONS (7)
  - ACUTE RESPIRATORY FAILURE [None]
  - GASTROENTERITIS [None]
  - HYPOVENTILATION [None]
  - HYPOVOLAEMIC SHOCK [None]
  - LETHARGY [None]
  - SEDATION [None]
  - SOMNOLENCE [None]
